FAERS Safety Report 12539322 (Version 1)
Quarter: 2016Q3

REPORT INFORMATION
  Report Type: Spontaneous
  Country: US (occurrence: None)
  Receive Date: 20160707
  Receipt Date: 20160707
  Transmission Date: 20161109
  Serious: Yes (Other)
  Sender: FDA-Public Use
  Company Number: None

PATIENT
  Age: 22 Year
  Sex: Female
  Weight: 49.9 kg

DRUGS (11)
  1. HUMIRA [Suspect]
     Active Substance: ADALIMUMAB
     Indication: COLITIS ULCERATIVE
     Route: 058
     Dates: start: 20160217, end: 20160527
  2. FISH OIL [Concomitant]
     Active Substance: FISH OIL
  3. PROBOITICS [Concomitant]
  4. GABA CALM [Concomitant]
  5. VITAMIN D [Concomitant]
     Active Substance: CHOLECALCIFEROL
  6. ST JOHNS WORT [Concomitant]
     Active Substance: ST. JOHN^S WORT
  7. VITAMIN C [Concomitant]
     Active Substance: ASCORBIC ACID
  8. SLO-IRON [Concomitant]
  9. MULTIVITAMIN [Concomitant]
     Active Substance: VITAMINS
  10. VIT B [Concomitant]
     Active Substance: VITAMIN B
  11. ELDERBERRY [Concomitant]
     Active Substance: HERBALS

REACTIONS (12)
  - Temperature intolerance [None]
  - Chest pain [None]
  - Weight decreased [None]
  - Oropharyngeal pain [None]
  - Arthralgia [None]
  - Epistaxis [None]
  - Feeling hot [None]
  - Myalgia [None]
  - Joint stiffness [None]
  - Headache [None]
  - Back pain [None]
  - Fatigue [None]

NARRATIVE: CASE EVENT DATE: 20160217
